FAERS Safety Report 23073891 (Version 3)
Quarter: 2023Q4

REPORT INFORMATION
  Report Type: Report from Study
  Country: MY (occurrence: MY)
  Receive Date: 20231017
  Receipt Date: 20231102
  Transmission Date: 20240110
  Serious: Yes (Hospitalization)
  Sender: FDA-Public Use
  Company Number: MY-Eisai Medical Research-EC-2023-144244

PATIENT
  Age: 57 Year
  Sex: Female
  Weight: 57.7 kg

DRUGS (23)
  1. LENVATINIB [Suspect]
     Active Substance: LENVATINIB
     Indication: Clear cell renal cell carcinoma
     Dosage: STARTING DOSE AT 20 MG FLUCTUATED DOSE
     Route: 048
     Dates: start: 20220308, end: 20230702
  2. LENVATINIB [Suspect]
     Active Substance: LENVATINIB
     Route: 048
     Dates: start: 20230724
  3. QUAVONLIMAB [Suspect]
     Active Substance: QUAVONLIMAB
     Indication: Clear cell renal cell carcinoma
     Dosage: MK-1308A (MK-1308 25MG + PEMBROLIZUMAB 400MG)
     Route: 042
     Dates: start: 20220308, end: 20230523
  4. QUAVONLIMAB [Suspect]
     Active Substance: QUAVONLIMAB
     Dosage: MK-1308A (MK-1308 25MG + PEMBROLIZUMAB 400MG)
     Route: 042
     Dates: start: 20230706
  5. QUAVONLIMAB [Suspect]
     Active Substance: QUAVONLIMAB
     Dosage: MK-1308A (MK-1308 25MG + PEMBROLIZUMAB 400MG)
     Route: 042
     Dates: start: 20230816
  6. FERROUS FUMARATE [Concomitant]
     Active Substance: FERROUS FUMARATE
     Dates: start: 202202
  7. VITAMINS NOS [Concomitant]
     Active Substance: VITAMINS
     Dates: start: 20220308
  8. BROMHEXINE HYDROCHLORIDE [Concomitant]
     Active Substance: BROMHEXINE HYDROCHLORIDE
     Dates: start: 20220726
  9. BENZYDAMINE HYDROCHLORIDE [Concomitant]
     Active Substance: BENZYDAMINE HYDROCHLORIDE
     Dates: start: 20220420
  10. AMLODIPINE [Concomitant]
     Active Substance: AMLODIPINE BESYLATE
     Dates: start: 202101
  11. LORATADINE [Concomitant]
     Active Substance: LORATADINE
     Dates: start: 20221017
  12. MORPHINE [Concomitant]
     Active Substance: MORPHINE
     Dates: start: 20220207
  13. LACTULOSE [Concomitant]
     Active Substance: LACTULOSE
     Dates: start: 20220207
  14. LOPERAMIDE [Concomitant]
     Active Substance: LOPERAMIDE
     Dates: start: 20220308
  15. DABIGATRAN [Concomitant]
     Active Substance: DABIGATRAN
     Dates: start: 202110
  16. DIHYDROCODEINE BITARTRATE [Concomitant]
     Active Substance: DIHYDROCODEINE BITARTRATE
     Dates: start: 20220315
  17. SIMVASTATIN [Concomitant]
     Active Substance: SIMVASTATIN
     Dates: start: 202110
  18. BONJELA [Concomitant]
     Active Substance: CETALKONIUM CHLORIDE\CHOLINE SALICYLATE\MENTHOL
     Dates: start: 20220412
  19. AQUEOUS (EMULSIFYING WAX; PARAFFIN, LIQUID; WHITE SOFT PARAFFIN) [Concomitant]
     Dates: start: 20220420
  20. BENADRYL [Concomitant]
     Active Substance: DIPHENHYDRAMINE HYDROCHLORIDE
     Dates: start: 20220726
  21. PEMBROLIZUMAB [Suspect]
     Active Substance: PEMBROLIZUMAB
  22. PEMBROLIZUMAB [Suspect]
     Active Substance: PEMBROLIZUMAB
  23. PEMBROLIZUMAB [Suspect]
     Active Substance: PEMBROLIZUMAB

REACTIONS (2)
  - Hypertension [Recovering/Resolving]
  - Infusion related reaction [Recovered/Resolved]

NARRATIVE: CASE EVENT DATE: 20230614
